FAERS Safety Report 14802820 (Version 1)
Quarter: 2018Q2

REPORT INFORMATION
  Report Type: Report from Study
  Country: ES (occurrence: ES)
  Receive Date: 20180424
  Receipt Date: 20180424
  Transmission Date: 20180711
  Serious: Yes (Death)
  Sender: FDA-Public Use
  Company Number: ES-PFIZER INC-2018164451

PATIENT
  Age: 71 Year
  Sex: Female

DRUGS (4)
  1. ANIDULAFUNGIN [Suspect]
     Active Substance: ANIDULAFUNGIN
     Dosage: UNK
     Dates: start: 2016, end: 2016
  2. AMPHOTERICIN B, LIPOSOME [Suspect]
     Active Substance: AMPHOTERICIN B
     Dosage: UNK
     Dates: start: 2016, end: 2016
  3. AMPHOTERICIN B, LIPOSOME [Suspect]
     Active Substance: AMPHOTERICIN B
     Indication: SYSTEMIC CANDIDA
     Dosage: UNK
     Dates: start: 2016, end: 2016
  4. ANIDULAFUNGIN [Suspect]
     Active Substance: ANIDULAFUNGIN
     Indication: SYSTEMIC CANDIDA
     Dosage: UNK
     Dates: start: 2016, end: 2016

REACTIONS (2)
  - CNS ventriculitis [Fatal]
  - Drug ineffective [Fatal]

NARRATIVE: CASE EVENT DATE: 2016
